FAERS Safety Report 5469943-4 (Version None)
Quarter: 2007Q3

REPORT INFORMATION
  Report Type: 
  Country: None (occurrence: None)
  Receive Date: 20070927
  Receipt Date: 20070918
  Transmission Date: 20080115
  Serious: Yes (Hospitalization)
  Sender: FDA-Public Use
  Company Number: LB-SANOFI-SYNTHELABO-A01200710439

PATIENT
  Age: 81 Year
  Sex: Female

DRUGS (3)
  1. ASPIRIN [Concomitant]
     Indication: ACUTE CORONARY SYNDROME
     Dosage: UNK
     Route: 065
  2. DIGITALIC [Suspect]
     Indication: CARDIAC FAILURE
     Dosage: UNK
     Route: 065
  3. PLAVIX [Suspect]
     Indication: ACUTE CORONARY SYNDROME
     Dosage: UNK
     Route: 048

REACTIONS (1)
  - THERAPEUTIC AGENT TOXICITY [None]
